FAERS Safety Report 16999373 (Version 1)
Quarter: 2019Q4

REPORT INFORMATION
  Report Type: Spontaneous
  Country: US (occurrence: US)
  Receive Date: 20191106
  Receipt Date: 20191106
  Transmission Date: 20200122
  Serious: Yes (Hospitalization)
  Sender: FDA-Public Use
  Company Number: US-MYLANLABS-2019M1105018

PATIENT
  Age: 24 Year
  Sex: Female

DRUGS (3)
  1. DIPHENHYDRAMINE. [Suspect]
     Active Substance: DIPHENHYDRAMINE
     Indication: PRODUCT USED FOR UNKNOWN INDICATION
     Route: 048
  2. ACETAMINOPHEN. [Suspect]
     Active Substance: ACETAMINOPHEN
     Indication: PRODUCT USED FOR UNKNOWN INDICATION
     Route: 048
  3. CLONAZEPAM. [Suspect]
     Active Substance: CLONAZEPAM
     Indication: PRODUCT USED FOR UNKNOWN INDICATION
     Dosage: 15-20 TABLETS
     Route: 048

REACTIONS (9)
  - Tachycardia [Recovering/Resolving]
  - Overdose [Unknown]
  - Mydriasis [Recovering/Resolving]
  - Delirium [Recovering/Resolving]
  - Mucosal dryness [Recovering/Resolving]
  - Somnolence [Recovering/Resolving]
  - Toxicity to various agents [Recovering/Resolving]
  - Psychiatric symptom [Recovering/Resolving]
  - Nystagmus [Recovered/Resolved]
